FAERS Safety Report 5528249-5 (Version None)
Quarter: 2007Q4

REPORT INFORMATION
  Report Type: 
  Country: None (occurrence: None)
  Receive Date: 20071128
  Receipt Date: 20071120
  Transmission Date: 20080405
  Serious: Yes (Hospitalization, Other)
  Sender: FDA-Public Use
  Company Number: JP-PFIZER INC-2007085863

PATIENT
  Sex: Female

DRUGS (6)
  1. LIPITOR [Suspect]
     Indication: HYPERLIPIDAEMIA
     Route: 048
     Dates: start: 20030115, end: 20070828
  2. CONIEL [Concomitant]
     Indication: HYPERTENSION
     Route: 048
  3. BUFFERIN [Concomitant]
     Indication: THROMBOSIS PROPHYLAXIS
     Route: 048
  4. MERISLON [Concomitant]
     Indication: DIZZINESS
     Route: 048
     Dates: start: 20030115, end: 20070828
  5. MAGNESIUM OXIDE [Concomitant]
     Indication: CONSTIPATION
     Route: 048
  6. TAKA-DIASTASE [Concomitant]
     Indication: CONSTIPATION
     Route: 048
     Dates: start: 20021113, end: 20070828

REACTIONS (2)
  - RHABDOMYOLYSIS [None]
  - SMALL INTESTINE CARCINOMA [None]
